FAERS Safety Report 4356109-4 (Version None)
Quarter: 2004Q2

REPORT INFORMATION
  Report Type: 
  Country: None (occurrence: None)
  Receive Date: 20040511
  Receipt Date: 20040409
  Transmission Date: 20050107
  Serious: Yes (Other)
  Sender: FDA-Public Use
  Company Number: JP-GLAXOSMITHKLINE-B0329842A

PATIENT
  Age: 55 Year
  Sex: Male

DRUGS (4)
  1. ZANTAC [Suspect]
     Indication: ULCER
     Dosage: 100MG TWICE PER DAY
     Route: 042
     Dates: start: 20040323, end: 20040406
  2. ZANTAC [Suspect]
  3. FULCALIQ [Concomitant]
     Route: 042
     Dates: start: 20040330
  4. LACTEC [Concomitant]
     Indication: DEHYDRATION
     Route: 042
     Dates: start: 20040323

REACTIONS (11)
  - BLOOD CREATINE PHOSPHOKINASE INCREASED [None]
  - CONVULSION [None]
  - FIBRIN D DIMER INCREASED [None]
  - HEPATIC FUNCTION ABNORMAL [None]
  - INFLAMMATION [None]
  - MYOGLOBIN BLOOD INCREASED [None]
  - PLATELET COUNT DECREASED [None]
  - PNEUMONIA ASPIRATION [None]
  - RESPIRATORY FAILURE [None]
  - RESPIRATORY TRACT HAEMORRHAGE [None]
  - RHABDOMYOLYSIS [None]
